FAERS Safety Report 9624068 (Version 1)
Quarter: 2013Q4

REPORT INFORMATION
  Report Type: Spontaneous
  Country: US (occurrence: US)
  Receive Date: 20131015
  Receipt Date: 20131015
  Transmission Date: 20140711
  Serious: No
  Sender: FDA-Public Use
  Company Number: US-BAUSCH-BL-2013-004235

PATIENT
  Age: 63 Year
  Sex: Female

DRUGS (3)
  1. LATANOPROST OPHTHALMIC SOLUTION 0.005% [Suspect]
     Indication: GLAUCOMA
     Dosage: 1 DROP IN LEFT EYE, ONCE DAILY
     Route: 047
     Dates: start: 201304, end: 20130709
  2. LATANOPROST OPHTHALMIC SOLUTION 0.005% [Suspect]
     Dosage: 1 DROP IN RIGHT EYE, ONCE DAILY
     Route: 047
     Dates: start: 201304, end: 20130709
  3. TIMOLOL [Concomitant]

REACTIONS (4)
  - Headache [Recovering/Resolving]
  - Chest pain [Recovering/Resolving]
  - Musculoskeletal discomfort [Recovering/Resolving]
  - Eye pain [Recovered/Resolved]
